FAERS Safety Report 8335799-5 (Version None)
Quarter: 2012Q2

REPORT INFORMATION
  Report Type: 
  Country: None (occurrence: None)
  Receive Date: 20120504
  Receipt Date: 20120424
  Transmission Date: 20120825
  Serious: Yes (Hospitalization)
  Sender: FDA-Public Use
  Company Number: PE-AMGEN-PERSP2012024380

PATIENT
  Age: 51 Year
  Sex: Female

DRUGS (1)
  1. ENBREL [Suspect]
     Indication: RHEUMATOID ARTHRITIS
     Dosage: UNK
     Dates: start: 20120201

REACTIONS (6)
  - OESOPHAGITIS [None]
  - FACE OEDEMA [None]
  - EOSINOPHILIA [None]
  - VOMITING [None]
  - DIARRHOEA [None]
  - RASH ERYTHEMATOUS [None]
